FAERS Safety Report 8482259-7 (Version None)
Quarter: 2012Q3

REPORT INFORMATION
  Report Type: 
  Country: None (occurrence: None)
  Receive Date: 20120702
  Receipt Date: 20120623
  Transmission Date: 20120928
  Serious: Yes (Death)
  Sender: FDA-Public Use
  Company Number: KR-US-EMD SERONO, INC.-7129109

PATIENT

DRUGS (1)
  1. GONAL-F [Suspect]
     Indication: IN VITRO FERTILISATION
     Route: 050
     Dates: start: 20110419, end: 20110426

REACTIONS (2)
  - CEREBRAL VENTRICLE DILATATION [None]
  - SPINE MALFORMATION [None]
